FAERS Safety Report 12780120 (Version 1)
Quarter: 2016Q3

REPORT INFORMATION
  Report Type: Spontaneous
  Country: US (occurrence: US)
  Receive Date: 20160923
  Receipt Date: 20160923
  Transmission Date: 20161109
  Serious: Yes (Hospitalization)
  Sender: FDA-Public Use
  Company Number: None

PATIENT
  Age: 61 Year
  Sex: Female
  Weight: 114.3 kg

DRUGS (3)
  1. MERCAPTOPURINE. [Concomitant]
     Active Substance: MERCAPTOPURINE
  2. HUMIRA [Suspect]
     Active Substance: ADALIMUMAB
     Indication: CROHN^S DISEASE
  3. METHOTREXATE. [Concomitant]
     Active Substance: METHOTREXATE

REACTIONS (4)
  - Erythema [None]
  - Lymphangitis [None]
  - Thrombophlebitis superficial [None]
  - Pain [None]

NARRATIVE: CASE EVENT DATE: 20160923
